FAERS Safety Report 10491443 (Version 1)
Quarter: 2014Q4

REPORT INFORMATION
  Report Type: Spontaneous
  Country: US (occurrence: US)
  Receive Date: 20141002
  Receipt Date: 20141002
  Transmission Date: 20150528
  Serious: No
  Sender: FDA-Public Use
  Company Number: US-GLAXOSMITHKLINE-A1053055A

PATIENT
  Sex: Male

DRUGS (17)
  1. ADVAIR HFA [Suspect]
     Active Substance: FLUTICASONE PROPIONATE\SALMETEROL XINAFOATE
     Indication: CHRONIC OBSTRUCTIVE PULMONARY DISEASE
     Dosage: 1PUFF TWICE PER DAY
     Route: 055
     Dates: start: 2002, end: 20131201
  2. LUTEIN [Concomitant]
     Active Substance: LUTEIN
  3. PENTOXIFYLLINE. [Concomitant]
     Active Substance: PENTOXIFYLLINE
  4. HUMULIN NOS [Concomitant]
     Active Substance: INSULIN HUMAN
  5. ALBUTEROL. [Concomitant]
     Active Substance: ALBUTEROL
  6. ALLOPURINOL. [Concomitant]
     Active Substance: ALLOPURINOL
  7. NIACIN. [Concomitant]
     Active Substance: NIACIN
  8. INSULIN [Concomitant]
     Active Substance: INSULIN NOS
  9. OXYGEN. [Concomitant]
     Active Substance: OXYGEN
  10. LISINOPRIL. [Concomitant]
     Active Substance: LISINOPRIL
  11. VITAMIN D [Concomitant]
     Active Substance: CHOLECALCIFEROL
     Dosage: 50000U MONTHLY
  12. MUCINEX [Concomitant]
     Active Substance: GUAIFENESIN
  13. SIMVASTATIN. [Concomitant]
     Active Substance: SIMVASTATIN
  14. HYDROCHLOROTHIAZIDE. [Concomitant]
     Active Substance: HYDROCHLOROTHIAZIDE
  15. SPIRONOLACTONE. [Concomitant]
     Active Substance: SPIRONOLACTONE
  16. FISH OIL [Concomitant]
     Active Substance: FISH OIL
  17. PROAIR HFA [Concomitant]
     Active Substance: ALBUTEROL SULFATE

REACTIONS (2)
  - Speech disorder [Unknown]
  - Dysphonia [Recovering/Resolving]
